FAERS Safety Report 9373492 (Version 1)
Quarter: 2013Q2

REPORT INFORMATION
  Report Type: Spontaneous
  Country: IL (occurrence: IL)
  Receive Date: 20130627
  Receipt Date: 20130627
  Transmission Date: 20140414
  Serious: Yes (Hospitalization, Other)
  Sender: FDA-Public Use
  Company Number: IL-VERTEX PHARMACEUTICALS INC-2013-007522

PATIENT
  Age: 55 Year
  Sex: Female

DRUGS (1)
  1. INCIVO [Suspect]
     Indication: PRODUCT USED FOR UNKNOWN INDICATION
     Route: 048
     Dates: start: 20130509

REACTIONS (5)
  - Hyponatraemia [Unknown]
  - Nausea [Unknown]
  - Diarrhoea [Unknown]
  - Rash generalised [Unknown]
  - Haemorrhage [Unknown]
